FAERS Safety Report 4395426-9 (Version None)
Quarter: 2004Q3

REPORT INFORMATION
  Report Type: 
  Country: None (occurrence: None)
  Receive Date: 20040709
  Receipt Date: 20040628
  Transmission Date: 20050211
  Serious: Yes (Other)
  Sender: FDA-Public Use
  Company Number: 2004043827

PATIENT
  Age: 75 Year
  Sex: Female
  Weight: 65.7716 kg

DRUGS (8)
  1. LIPITOR [Suspect]
     Indication: BLOOD CHOLESTEROL INCREASED
     Dosage: 10 MG (10 MG, 1 IN 1 D), ORAL
     Route: 048
     Dates: end: 20040607
  2. ALLOPURINOL [Concomitant]
  3. CLOPIDOGREL BISULFATE [Concomitant]
  4. RALOXIFENE HCL [Concomitant]
  5. HYDROCHLOROTHIAZIDE [Concomitant]
  6. LISINOPRIL [Concomitant]
  7. AMLODIPINE BESYLATE [Concomitant]
  8. ESOMEPRAZOLE (ESOMEPRAZOLE) [Concomitant]

REACTIONS (2)
  - DESQUAMATION MOUTH [None]
  - PULMONARY MASS [None]
